FAERS Safety Report 24729397 (Version 1)
Quarter: 2024Q4

REPORT INFORMATION
  Report Type: Spontaneous
  Country: CN (occurrence: CN)
  Receive Date: 20241213
  Receipt Date: 20241213
  Transmission Date: 20250115
  Serious: Yes (Hospitalization, Other)
  Sender: HISUN PHARMACEUTICALS USA INC
  Company Number: CN-Hisun Pharmaceuticals USA Inc.-000134

PATIENT
  Age: 60 Year
  Sex: Male

DRUGS (3)
  1. IRBESARTAN [Suspect]
     Active Substance: IRBESARTAN
     Indication: Hypertension
     Route: 048
     Dates: start: 20241030, end: 20241123
  2. Haikun Shenxi [Concomitant]
     Indication: Chronic kidney disease
     Route: 048
     Dates: start: 20241030, end: 20241124
  3. HERBALS [Concomitant]
     Active Substance: HERBALS
     Indication: Chronic kidney disease
     Route: 048
     Dates: start: 20241030, end: 20241124

REACTIONS (2)
  - Gastric haemorrhage [Recovered/Resolved]
  - Gastric mucosal lesion [Recovered/Resolved]

NARRATIVE: CASE EVENT DATE: 20241121
